FAERS Safety Report 4461953-9 (Version None)
Quarter: 2004Q3

REPORT INFORMATION
  Report Type: 
  Country: None (occurrence: None)
  Receive Date: 20040929
  Receipt Date: 20031124
  Transmission Date: 20050211
  Serious: No
  Sender: FDA-Public Use
  Company Number: US-GLAXOSMITHKLINE-A0441343A

PATIENT
  Sex: Female

DRUGS (1)
  1. SEREVENT [Suspect]
     Indication: ILL-DEFINED DISORDER
     Route: 055

REACTIONS (5)
  - BURNING SENSATION [None]
  - DRY MOUTH [None]
  - GLOSSODYNIA [None]
  - HYPOAESTHESIA ORAL [None]
  - TONGUE DISORDER [None]
